FAERS Safety Report 12426699 (Version 3)
Quarter: 2016Q3

REPORT INFORMATION
  Report Type: Report from Study
  Country: US (occurrence: US)
  Receive Date: 20160601
  Receipt Date: 20160705
  Transmission Date: 20161109
  Serious: Yes (Death, Other)
  Sender: FDA-Public Use
  Company Number: GXBR2016US001987

PATIENT
  Age: 72 Year
  Sex: Male
  Weight: 136.5 kg

DRUGS (4)
  1. TERAZOSIN HCL CAPSULES [Suspect]
     Active Substance: TERAZOSIN HYDROCHLORIDE
     Indication: PRODUCT USED FOR UNKNOWN INDICATION
     Dosage: UNK DF, UNK
     Route: 065
     Dates: end: 201603
  2. TYVASO [Suspect]
     Active Substance: TREPROSTINIL
     Dosage: 18 UG, TID
     Route: 055
     Dates: start: 201603
  3. TYVASO [Suspect]
     Active Substance: TREPROSTINIL
     Indication: PULMONARY ARTERIAL HYPERTENSION
     Dosage: 18 - 54 UG, QID
     Route: 055
     Dates: start: 20160309
  4. REVATIO [Concomitant]
     Active Substance: SILDENAFIL CITRATE
     Indication: PRODUCT USED FOR UNKNOWN INDICATION
     Dosage: UNK DF, UNK
     Route: 065

REACTIONS (15)
  - Fall [Recovered/Resolved]
  - Fluid retention [Unknown]
  - Loss of consciousness [Recovered/Resolved]
  - Blood pressure decreased [Recovering/Resolving]
  - Presyncope [Unknown]
  - Death [Fatal]
  - Oedema [Unknown]
  - Syncope [Unknown]
  - Cough [Unknown]
  - Oxygen saturation decreased [Recovered/Resolved]
  - Head injury [Recovered/Resolved]
  - Skin abrasion [Recovered/Resolved]
  - Weight increased [Recovered/Resolved]
  - Dizziness [Unknown]
  - Dyspnoea [Unknown]

NARRATIVE: CASE EVENT DATE: 201605
